FAERS Safety Report 18775166 (Version 8)
Quarter: 2024Q1

REPORT INFORMATION
  Report Type: Spontaneous
  Country: US (occurrence: US)
  Receive Date: 20210122
  Receipt Date: 20240223
  Transmission Date: 20240410
  Serious: Yes (Other)
  Sender: FDA-Public Use
  Company Number: US-PFIZER INC-2021041681

PATIENT
  Age: 53 Year
  Sex: Female

DRUGS (5)
  1. IBRANCE [Suspect]
     Active Substance: PALBOCICLIB
     Indication: Breast cancer metastatic
     Dosage: 100 MG, DAILY (TAKE 1 TABLET DAILY/100 MG BY MOUTH)
     Route: 048
     Dates: start: 20200819
  2. IBRANCE [Suspect]
     Active Substance: PALBOCICLIB
     Indication: Gastrointestinal inflammation
     Dosage: 100 MG DAILY DAYS 1-21
     Dates: start: 20210525
  3. XARELTO [Concomitant]
     Active Substance: RIVAROXABAN
     Dosage: UNK
  4. LETROZOLE [Concomitant]
     Active Substance: LETROZOLE
     Dosage: UNK
  5. OXYCODONE HYDROCHLORIDE [Concomitant]
     Active Substance: OXYCODONE HYDROCHLORIDE
     Dosage: UNK

REACTIONS (5)
  - Cancer pain [Not Recovered/Not Resolved]
  - Product dose omission in error [Unknown]
  - Nausea [Unknown]
  - Fatigue [Unknown]
  - Emotional disorder [Unknown]
